FAERS Safety Report 4706013-4 (Version None)
Quarter: 2005Q2

REPORT INFORMATION
  Report Type: 
  Country: None (occurrence: None)
  Receive Date: 20050629
  Receipt Date: 20050318
  Transmission Date: 20051028
  Serious: Yes (Death)
  Sender: FDA-Public Use
  Company Number: 03P-163-0240499-00

PATIENT
  Age: 78 Year
  Sex: Female
  Weight: 38.5557 kg

DRUGS (11)
  1. HUMIRA [Suspect]
     Indication: RHEUMATOID ARTHRITIS
     Dosage: 40 MG, SUBCUTANEOUS
     Route: 058
     Dates: start: 20030319, end: 20030701
  2. METOLAZONE [Concomitant]
  3. FUROSEMIDE [Concomitant]
  4. HYOSCYAMINE SULFATE [Concomitant]
  5. PHENYTOIN SODIUM [Concomitant]
  6. ESOMEPRAZOLE [Concomitant]
  7. PREDNISONE TAB [Concomitant]
  8. HYDROCHLOROTHIAZIDE [Concomitant]
  9. LOSARTAN POTASSIUM [Concomitant]
  10. WARFARIN SODIUM [Concomitant]
  11. FENTANYL [Concomitant]

REACTIONS (1)
  - DEATH [None]
